FAERS Safety Report 23140868 (Version 1)
Quarter: 2023Q4

REPORT INFORMATION
  Report Type: Spontaneous
  Country: IT (occurrence: IT)
  Receive Date: 20231103
  Receipt Date: 20231103
  Transmission Date: 20240109
  Serious: No
  Sender: FDA-Public Use
  Company Number: IT-SCALL-2023-IT-120296

PATIENT
  Age: 76 Year
  Sex: Male
  Weight: 72 kg

DRUGS (1)
  1. DUTASTERIDE [Suspect]
     Active Substance: DUTASTERIDE
     Indication: Benign prostatic hyperplasia
     Dosage: 1 CPR /DAY OR 0.5 MG/DAY
     Route: 048
     Dates: start: 20230601, end: 20230610

REACTIONS (2)
  - Urticaria [Recovering/Resolving]
  - Periorbital swelling [Recovering/Resolving]

NARRATIVE: CASE EVENT DATE: 20230604
